FAERS Safety Report 18347472 (Version 1)
Quarter: 2020Q4

REPORT INFORMATION
  Report Type: Spontaneous
  Country: NO (occurrence: NO)
  Receive Date: 20201006
  Receipt Date: 20201006
  Transmission Date: 20210114
  Serious: Yes (Life-Threatening, Other)
  Sender: FDA-Public Use
  Company Number: NO-ROCHE-2690166

PATIENT
  Age: 67 Year
  Sex: Female

DRUGS (1)
  1. MABTHERA [Suspect]
     Active Substance: RITUXIMAB
     Indication: RHEUMATOID ARTHRITIS
     Dosage: INITIALLY 2 INFUSIONS, THEREAFTER 1 INFUSION EVERY 6TH MONTHS??/DEC/2019, MOST RECENT DOSE
     Route: 041
     Dates: start: 201709

REACTIONS (5)
  - Interstitial lung disease [Recovering/Resolving]
  - Pleural effusion [Recovering/Resolving]
  - Epilepsy [Recovering/Resolving]
  - Pericardial effusion [Recovering/Resolving]
  - Supraventricular tachycardia [Recovering/Resolving]

NARRATIVE: CASE EVENT DATE: 201903
